FAERS Safety Report 6542119-5 (Version None)
Quarter: 2010Q1

REPORT INFORMATION
  Report Type: 
  Country: None (occurrence: None)
  Receive Date: 20100119
  Receipt Date: 20100112
  Transmission Date: 20100710
  Serious: Yes (Other)
  Sender: FDA-Public Use
  Company Number: DE-JNJCH-2010000788

PATIENT
  Sex: Female

DRUGS (3)
  1. REGAINE 2% [Suspect]
     Indication: DRUG USE FOR UNKNOWN INDICATION
     Dosage: TEXT:1ML DAILY
     Route: 061
     Dates: start: 20100109, end: 20100112
  2. ANDROCUR [Concomitant]
     Indication: MENOPAUSAL SYMPTOMS
     Dosage: TEXT:UNKNOWN
     Route: 065
  3. ESTRIFAM [Concomitant]
     Indication: MENOPAUSAL SYMPTOMS
     Dosage: TEXT:UNKNOWN
     Route: 065

REACTIONS (1)
  - MYOPIA [None]
